FAERS Safety Report 6292608-6 (Version None)
Quarter: 2009Q3

REPORT INFORMATION
  Report Type: 
  Country: None (occurrence: None)
  Receive Date: 20090731
  Receipt Date: 20090728
  Transmission Date: 20100115
  Serious: Yes (Other)
  Sender: FDA-Public Use
  Company Number: US-ASTRAZENECA-2008UW25749

PATIENT
  Age: 52 Year
  Sex: Female
  Weight: 110.7 kg

DRUGS (6)
  1. SEROQUEL [Suspect]
     Indication: DEPRESSION
     Dosage: 100 TO 600 MG
     Route: 048
     Dates: start: 20051001, end: 20071201
  2. SEROQUEL [Suspect]
     Indication: INSOMNIA
     Dosage: 100 TO 600 MG
     Route: 048
     Dates: start: 20051001, end: 20071201
  3. ABILIFY [Concomitant]
     Dates: start: 20090101
  4. GEODON [Concomitant]
     Dates: start: 20050101
  5. RISPERDAL [Concomitant]
     Dates: start: 20080101
  6. ZYPREXA [Concomitant]

REACTIONS (4)
  - DIABETES MELLITUS [None]
  - DIVERTICULITIS [None]
  - GASTROINTESTINAL DISORDER [None]
  - PANCREATITIS [None]
